FAERS Safety Report 9539017 (Version 5)
Quarter: 2013Q4

REPORT INFORMATION
  Report Type: Report from Study
  Country: DE (occurrence: DE)
  Receive Date: 20130920
  Receipt Date: 20131126
  Transmission Date: 20140711
  Serious: Yes (Death, Hospitalization, Other)
  Sender: FDA-Public Use
  Company Number: PHHO2013DE008915

PATIENT
  Sex: 0

DRUGS (10)
  1. ACZ885 [Suspect]
     Indication: SCHNITZLER^S SYNDROME
     Dosage: 300 MG, UNK
     Route: 058
     Dates: start: 20120824, end: 20130605
  2. BLINDED ACZ885 [Suspect]
     Indication: SCHNITZLER^S SYNDROME
     Dosage: UNK
     Route: 058
  3. BLINDED NO TREATMENT RECEIVED [Suspect]
     Indication: SCHNITZLER^S SYNDROME
     Dosage: UNK
     Route: 058
  4. BLINDED PLACEBO [Suspect]
     Indication: SCHNITZLER^S SYNDROME
     Dosage: UNK
     Route: 058
  5. ASS [Concomitant]
     Indication: CARDIAC FAILURE
     Dosage: 100 MG, 0-1-0
  6. BISOPROLOL [Concomitant]
     Indication: CARDIAC FAILURE
     Dosage: 2.5 MG, 1-0-0
  7. TOREM [Concomitant]
     Indication: CARDIAC FAILURE
     Dosage: 5 MG, 1-0-0
  8. DECORTIN H [Concomitant]
     Indication: SCHNITZLER^S SYNDROME
     Dosage: 12.5 MG, 1-0-0
     Dates: start: 20120810
  9. BONVIVA [Concomitant]
     Indication: OSTEOPOROSIS
     Dosage: 3 MG, Q3MO
     Route: 042
  10. CALCIUM + VITAMIN D3 [Concomitant]
     Indication: OSTEOPOROSIS
     Dosage: 1000MG CA, 880 IE VITD3

REACTIONS (11)
  - Septic shock [Fatal]
  - Sepsis [Fatal]
  - Hepatic failure [Fatal]
  - Renal failure [Fatal]
  - Encephalopathy [Fatal]
  - Hyperkalaemia [Fatal]
  - Atypical mycobacterial infection [Unknown]
  - Thrombocytopenia [Unknown]
  - Pleural effusion [Unknown]
  - Anaemia [Not Recovered/Not Resolved]
  - Cardiac failure [Unknown]
